FAERS Safety Report 8204688-9 (Version None)
Quarter: 2012Q1

REPORT INFORMATION
  Report Type: 
  Country: None (occurrence: None)
  Receive Date: 20120313
  Receipt Date: 20120306
  Transmission Date: 20120608
  Serious: Yes (Other)
  Sender: FDA-Public Use
  Company Number: GB-TEVA-326031ISR

PATIENT
  Sex: Female
  Weight: 63 kg

DRUGS (1)
  1. MIRTAZAPINE [Suspect]
     Indication: ANXIETY
     Route: 048
     Dates: start: 20120119, end: 20120126

REACTIONS (1)
  - WHEEZING [None]
